FAERS Safety Report 7411522-3 (Version None)
Quarter: 2011Q2

REPORT INFORMATION
  Report Type: 
  Country: None (occurrence: None)
  Receive Date: 20110413
  Receipt Date: 20100819
  Transmission Date: 20111010
  Serious: Yes (Other)
  Sender: FDA-Public Use
  Company Number: US-BRISTOL-MYERS SQUIBB COMPANY-15236904

PATIENT
  Age: 71 Year
  Sex: Female

DRUGS (2)
  1. ERBITUX [Suspect]
     Indication: COLORECTAL CANCER
     Dosage: THERAPY: ABOUT A YEAR
     Route: 042
     Dates: start: 20091113
  2. IRINOTECAN HCL [Suspect]
     Dates: start: 20091113

REACTIONS (2)
  - HYPOCALCAEMIA [None]
  - HYPOMAGNESAEMIA [None]
